FAERS Safety Report 24072490 (Version 2)
Quarter: 2024Q3

REPORT INFORMATION
  Report Type: Spontaneous
  Country: BR (occurrence: BR)
  Receive Date: 20240710
  Receipt Date: 20240720
  Transmission Date: 20241017
  Serious: Yes (Other)
  Sender: CELLTRION
  Company Number: BR-CELLTRION INC.-2024BR016286

PATIENT

DRUGS (10)
  1. INFLIXIMAB [Suspect]
     Active Substance: INFLIXIMAB
     Indication: Colitis ulcerative
     Dosage: 5 AMPOULES, FREQUENCY UNK
     Route: 042
     Dates: start: 20240516
  2. INFLIXIMAB [Suspect]
     Active Substance: INFLIXIMAB
     Dosage: 5 AMPOULES, FREQUENCY UNK (A WEEK LATER)
     Route: 042
  3. PREDNISONE [Concomitant]
     Active Substance: PREDNISONE
     Indication: Colitis
     Dosage: 40 MG, THEN 25 MG, THEN 20 MG, NOW 15 MG / 1 PILL A DAY
     Route: 048
     Dates: start: 20240505
  4. MIRACALCIO VIT D [Concomitant]
     Indication: Colitis
     Dosage: 500 MG / 2 PILLS A DAY
     Route: 048
     Dates: start: 20240611
  5. METHOTREXATE [Concomitant]
     Active Substance: METHOTREXATE
     Indication: Colitis
     Dosage: 2.5 MG / 1 PILL A WEEK
     Route: 048
     Dates: start: 20240611
  6. FOLIC ACID [Concomitant]
     Active Substance: FOLIC ACID
     Indication: Product used for unknown indication
     Dosage: 5 MG / 1 PILL A WEEK
     Route: 048
     Dates: start: 20240611
  7. ATENOLOL [Concomitant]
     Active Substance: ATENOLOL
     Indication: Hypertension
     Dosage: 50 MG / 2 PILLS A DAY (START DATE: 6 YEARS AGO)
     Route: 048
  8. LOSARTAN [Concomitant]
     Active Substance: LOSARTAN
     Indication: Hypertension
     Dosage: 50 MG / 2 PILLS A DAY (START DATE: 3 YEARS AND 5 MONTH AGO)
     Route: 048
  9. ATORVASTATIN [Concomitant]
     Active Substance: ATORVASTATIN
     Indication: Hypertension
     Dosage: 40 MG / 1 PILL A DAY (START DATE: 3 YEARS AND 5 MONTH AGO)
     Route: 048
  10. ASPIRIN [Concomitant]
     Active Substance: ASPIRIN
     Indication: Hypertension
     Dosage: 100 MG / 1 PILL A DAY (START DATE: 3 YEARS AND 5 MONTH AGO)
     Route: 048

REACTIONS (3)
  - Colitis ulcerative [Not Recovered/Not Resolved]
  - Therapy interrupted [Not Recovered/Not Resolved]
  - Intentional product use issue [Unknown]

NARRATIVE: CASE EVENT DATE: 20240624
